FAERS Safety Report 13117523 (Version 4)
Quarter: 2017Q4

REPORT INFORMATION
  Report Type: Report from Study
  Country: CL (occurrence: CL)
  Receive Date: 20170116
  Receipt Date: 20171109
  Transmission Date: 20180320
  Serious: Yes (Death)
  Sender: FDA-Public Use
  Company Number: CL-ROCHE-1871034

PATIENT
  Age: 63 Year
  Sex: Female
  Weight: 58.3 kg

DRUGS (16)
  1. PACLITAXEL. [Suspect]
     Active Substance: PACLITAXEL
     Indication: NON-SMALL CELL LUNG CANCER STAGE IV
     Dosage: MOST RECENT DOSE ON 07/DEC/2016, 315.8 MG
     Route: 042
     Dates: start: 20161024
  2. CODEINE [Concomitant]
     Active Substance: CODEINE
     Indication: PAIN
     Route: 065
     Dates: start: 201605
  3. ESOMEPRAZOL [Concomitant]
     Active Substance: ESOMEPRAZOLE
     Route: 065
     Dates: start: 20161104
  4. PARACETAMOL [Concomitant]
     Active Substance: ACETAMINOPHEN
     Indication: PROPHYLAXIS
     Route: 065
     Dates: start: 201605
  5. METADONA [Concomitant]
     Active Substance: METHADONE HYDROCHLORIDE
     Route: 065
     Dates: start: 20161104
  6. RANITIDINE. [Concomitant]
     Active Substance: RANITIDINE
     Indication: PREMEDICATION
     Route: 065
     Dates: start: 20161207, end: 20161207
  7. CEFADROXILO [Concomitant]
     Active Substance: CEFADROXIL
     Indication: URINARY TRACT INFECTION
     Route: 065
     Dates: start: 20161103
  8. VIADIL (CHILE) [Concomitant]
     Indication: URINARY TRACT INFECTION
     Route: 065
     Dates: start: 20161103
  9. LOSARTAN. [Concomitant]
     Active Substance: LOSARTAN
     Indication: HYPERTENSION
     Route: 065
     Dates: start: 201506
  10. ONDANSETRON [Concomitant]
     Active Substance: ONDANSETRON
     Indication: PREMEDICATION
     Route: 065
     Dates: start: 20161207, end: 20161207
  11. ATEZOLIZUMAB. [Suspect]
     Active Substance: ATEZOLIZUMAB
     Indication: NON-SMALL CELL LUNG CANCER STAGE IV
     Dosage: MOST RECENT DOSE ON 07/DEC/2016
     Route: 042
     Dates: start: 20161024
  12. BEVACIZUMAB. [Suspect]
     Active Substance: BEVACIZUMAB
     Indication: NON-SMALL CELL LUNG CANCER STAGE IV
     Dosage: MOST RECENT DOSE ON 07/DEC/2016, 955 MG
     Route: 042
     Dates: start: 20161024
  13. MORFINA [Concomitant]
     Active Substance: MORPHINE HYDROCHLORIDE
     Indication: URINARY TRACT INFECTION
     Route: 065
     Dates: start: 20161103
  14. CARBOPLATIN. [Suspect]
     Active Substance: CARBOPLATIN
     Indication: NON-SMALL CELL LUNG CANCER STAGE IV
     Dosage: DOSE PER PROTOCOL AT AUC=6MG/ML/MIN?MOST RECENT DOSE ON 07/DEC/2016, 472 MG
     Route: 042
     Dates: start: 20161024
  15. GEMFIBROZYL [Concomitant]
     Indication: DYSLIPIDAEMIA
     Route: 065
     Dates: start: 201602
  16. CLORFENAMINA [Concomitant]
     Indication: PREMEDICATION
     Route: 065
     Dates: start: 20161207, end: 20161207

REACTIONS (1)
  - Febrile neutropenia [Fatal]

NARRATIVE: CASE EVENT DATE: 20161218
